FAERS Safety Report 5255334-8 (Version None)
Quarter: 2007Q1

REPORT INFORMATION
  Report Type: 
  Country: None (occurrence: None)
  Receive Date: 20070305
  Receipt Date: 20070301
  Transmission Date: 20070707
  Serious: Yes (Life-Threatening)
  Sender: FDA-Public Use
  Company Number: IT-GLAXOSMITHKLINE-B0460523A

PATIENT
  Age: 50 Year
  Sex: Female

DRUGS (2)
  1. ZEFFIX [Suspect]
     Dosage: 100MG PER DAY
     Route: 048
     Dates: start: 20051230, end: 20070219
  2. HEPSERA [Suspect]
     Dosage: 10MG PER DAY
     Route: 048
     Dates: start: 20060110, end: 20070219

REACTIONS (1)
  - MYOCARDIAL INFARCTION [None]
